FAERS Safety Report 4694530-5 (Version None)
Quarter: 2005Q2

REPORT INFORMATION
  Report Type: 
  Country: None (occurrence: None)
  Receive Date: 20050614
  Receipt Date: 20050324
  Transmission Date: 20051028
  Serious: No
  Sender: FDA-Public Use
  Company Number: USA050394075

PATIENT
  Age: 63 Year
  Sex: Male

DRUGS (11)
  1. CIALIS [Suspect]
     Indication: ERECTILE DYSFUNCTION
     Dosage: 10 MG/1 AS NEEDED
     Dates: start: 20050319
  2. PLAVIX [Concomitant]
  3. GLYBURIDE [Concomitant]
  4. METFORMIN HCL [Concomitant]
  5. LORAZEPAM [Concomitant]
  6. TETRACYCLINE [Concomitant]
  7. LEVOTHYROXINE [Concomitant]
  8. LISINOPRIL [Concomitant]
  9. FUROSEMIDE [Concomitant]
  10. ALBUTEROL [Concomitant]
  11. FLOVENT [Concomitant]

REACTIONS (1)
  - DRUG INEFFECTIVE [None]
